FAERS Safety Report 8380532-4 (Version None)
Quarter: 2012Q2

REPORT INFORMATION
  Report Type: 
  Country: None (occurrence: None)
  Receive Date: 20120523
  Receipt Date: 20120515
  Transmission Date: 20120825
  Serious: Yes (Hospitalization)
  Sender: FDA-Public Use
  Company Number: US-ROCHE-1067072

PATIENT
  Sex: Female

DRUGS (12)
  1. PEGASYS [Suspect]
     Indication: HEPATITIS C
     Route: 058
     Dates: start: 20120418
  2. NITROGLYCERIN [Concomitant]
  3. LEVOTHYROXINE SODIUM [Concomitant]
  4. SODIUM CHLORIDE [Concomitant]
  5. ASPIRIN [Concomitant]
  6. SYNTHROID [Concomitant]
  7. HYDROXYZINE [Concomitant]
  8. MORPHINE SULFATE [Concomitant]
  9. DACLATASVIR [Suspect]
     Indication: HEPATITIS C
     Route: 048
     Dates: start: 20120419
  10. HYDROCHLOROTHIAZIDE/SPIRONOLACTONE [Concomitant]
  11. METOPROLOL TARTRATE [Concomitant]
  12. COPEGUS [Suspect]
     Indication: HEPATITIS C
     Route: 048
     Dates: start: 20120418

REACTIONS (1)
  - PANIC ATTACK [None]
